FAERS Safety Report 17384718 (Version 4)
Quarter: 2020Q2

REPORT INFORMATION
  Report Type: Report from Study
  Country: US (occurrence: US)
  Receive Date: 20200206
  Receipt Date: 20200508
  Transmission Date: 20200713
  Serious: Yes (Death, Hospitalization, Other)
  Sender: FDA-Public Use
  Company Number: US-ACTELION-A-US2015-127672

PATIENT
  Age: 60 Year
  Sex: Female
  Weight: 71.66 kg

DRUGS (6)
  1. DILTIAZEM. [Concomitant]
     Active Substance: DILTIAZEM
  2. OPSUMIT [Suspect]
     Active Substance: MACITENTAN
     Dosage: 10 MG, QD
     Route: 048
  3. REMODULIN [Suspect]
     Active Substance: TREPROSTINIL
     Indication: PRODUCT USED FOR UNKNOWN INDICATION
     Dosage: 4.5 HOURS PER DAY
     Route: 042
     Dates: start: 2012
  4. ADEMPAS [Concomitant]
     Active Substance: RIOCIGUAT
  5. OPSUMIT [Suspect]
     Active Substance: MACITENTAN
     Indication: PULMONARY ARTERIAL HYPERTENSION
     Dosage: 10 MG, QD
     Route: 048
     Dates: start: 20150518
  6. ADCIRCA [Concomitant]
     Active Substance: TADALAFIL

REACTIONS (56)
  - Death [Fatal]
  - Vomiting [Unknown]
  - Diarrhoea [Unknown]
  - Weight decreased [Unknown]
  - Secretion discharge [Unknown]
  - Anaemia [Unknown]
  - Catheter site swelling [Unknown]
  - Eye contusion [Unknown]
  - Insomnia [Unknown]
  - Pancreatic mass [Unknown]
  - Biopsy pancreas [Unknown]
  - Neuropathy peripheral [Unknown]
  - Purulent discharge [Unknown]
  - Dyspnoea [Unknown]
  - Joint injury [Unknown]
  - Pancreatitis [Unknown]
  - Muscle spasms [Unknown]
  - Urticaria [Unknown]
  - Lower respiratory tract infection [Unknown]
  - Fatigue [Unknown]
  - Infusion site pain [Unknown]
  - Limb injury [Unknown]
  - Caecectomy [Unknown]
  - Nausea [Unknown]
  - Catheter site pruritus [Unknown]
  - Intestinal resection [Unknown]
  - Cyst aspiration [Unknown]
  - Abdominal pain upper [Unknown]
  - Lymphadenopathy [Unknown]
  - Pneumonia [Unknown]
  - Cough [Unknown]
  - Headache [Unknown]
  - Dyspnoea exertional [Unknown]
  - Application site pruritus [Unknown]
  - Fall [Unknown]
  - Pancreatic carcinoma [Unknown]
  - Back pain [Unknown]
  - Dyspepsia [Unknown]
  - Nasal congestion [Unknown]
  - Asthenia [Unknown]
  - Dizziness [Unknown]
  - Catheter site haemorrhage [Unknown]
  - Catheter site scab [Unknown]
  - Intestinal obstruction [Unknown]
  - Pyrexia [Unknown]
  - Contusion [Unknown]
  - Productive cough [Unknown]
  - Infusion site extravasation [Unknown]
  - Catheter site erythema [Unknown]
  - Catheter site scar [Unknown]
  - Catheter site pain [Unknown]
  - Pancreatic cyst [Unknown]
  - Pancreatic calcification [Unknown]
  - Chest discomfort [Unknown]
  - Infusion site rash [Unknown]
  - Ligament sprain [Unknown]

NARRATIVE: CASE EVENT DATE: 20190612
